FAERS Safety Report 9876285 (Version 1)
Quarter: 2014Q1

REPORT INFORMATION
  Report Type: Spontaneous
  Country: US (occurrence: None)
  Receive Date: 20140205
  Receipt Date: 20140205
  Transmission Date: 20141002
  Serious: No
  Sender: FDA-Public Use
  Company Number: None

PATIENT
  Age: 71 Year
  Sex: Female

DRUGS (1)
  1. FLUOCINONIDE [Suspect]
     Indication: RASH
     Route: 061
     Dates: start: 20140115, end: 20140129

REACTIONS (2)
  - Product label on wrong product [None]
  - Drug dispensing error [None]
